FAERS Safety Report 23886131 (Version 2)
Quarter: 2024Q2

REPORT INFORMATION
  Report Type: Spontaneous
  Country: US (occurrence: US)
  Receive Date: 20240522
  Receipt Date: 20240527
  Transmission Date: 20240716
  Serious: Yes (Other)
  Sender: FDA-Public Use
  Company Number: US-002147023-NVSC2024US103970

PATIENT

DRUGS (1)
  1. KESIMPTA [Suspect]
     Active Substance: OFATUMUMAB
     Indication: Product used for unknown indication
     Route: 065

REACTIONS (8)
  - Multiple sclerosis [Unknown]
  - Visual impairment [Unknown]
  - Optic nerve disorder [Unknown]
  - Alopecia [Unknown]
  - Brain fog [Unknown]
  - Paraesthesia [Unknown]
  - Pain [Unknown]
  - Headache [Unknown]
